FAERS Safety Report 21903099 (Version 1)
Quarter: 2023Q1

REPORT INFORMATION
  Report Type: Spontaneous
  Country: DE (occurrence: DE)
  Receive Date: 20230124
  Receipt Date: 20230124
  Transmission Date: 20230417
  Serious: Yes (Life-Threatening, Hospitalization, Other)
  Sender: FDA-Public Use
  Company Number: DE-Accord-297118

PATIENT
  Age: 19 Year
  Sex: Male

DRUGS (10)
  1. MYCOPHENOLATE MOFETIL [Suspect]
     Active Substance: MYCOPHENOLATE MOFETIL
     Indication: Interstitial lung disease
     Dates: start: 202109
  2. METHYLPREDNISOLONE [Suspect]
     Active Substance: METHYLPREDNISOLONE
     Indication: Interstitial lung disease
     Dosage: HIGH-DOSE (UP TO 500 MG METHYLPREDNISOLONE PER DAY FOR 3 DAYS)
     Route: 042
     Dates: start: 2021
  3. PREDNISOLONE [Suspect]
     Active Substance: PREDNISOLONE
     Indication: Interstitial lung disease
     Route: 042
     Dates: start: 2021
  4. CYCLOSPORINE [Concomitant]
     Active Substance: CYCLOSPORINE
     Indication: Interstitial lung disease
     Dates: start: 2021
  5. CYCLOPHOSPHAMIDE [Concomitant]
     Active Substance: CYCLOPHOSPHAMIDE
     Indication: Interstitial lung disease
     Route: 042
     Dates: start: 202108
  6. DARATUMUMAB [Concomitant]
     Active Substance: DARATUMUMAB
     Indication: Interstitial lung disease
     Route: 058
     Dates: start: 202112
  7. RITUXIMAB [Concomitant]
     Active Substance: RITUXIMAB
     Indication: Interstitial lung disease
     Dosage: 2*1000 MG
     Route: 042
     Dates: start: 202109
  8. TOFACITINIB [Concomitant]
     Active Substance: TOFACITINIB
     Indication: Interstitial lung disease
     Dates: start: 202108
  9. ANAKINRA [Concomitant]
     Active Substance: ANAKINRA
     Indication: Interstitial lung disease
     Route: 058
     Dates: start: 202110
  10. CYCLOSPORINE [Concomitant]
     Active Substance: CYCLOSPORINE
     Indication: Interstitial lung disease
     Dosage: GRADUALLY INCREASE
     Dates: start: 202109, end: 2021

REACTIONS (4)
  - Pseudomonas infection [Recovering/Resolving]
  - Bacterial tracheitis [Recovering/Resolving]
  - Sepsis [Recovering/Resolving]
  - Off label use [Unknown]
